FAERS Safety Report 8218928-3 (Version None)
Quarter: 2012Q1

REPORT INFORMATION
  Report Type: 
  Country: None (occurrence: None)
  Receive Date: 20120319
  Receipt Date: 20120309
  Transmission Date: 20120608
  Serious: Yes (Other)
  Sender: FDA-Public Use
  Company Number: US-EISAI INC-E7389-02174-CLI-US

PATIENT
  Sex: Female
  Weight: 60 kg

DRUGS (7)
  1. SUPER GREEN [Concomitant]
     Route: 048
     Dates: start: 20111015
  2. CRANBERRY [Concomitant]
     Route: 048
     Dates: start: 20111015
  3. OMEGA FISH OIL [Concomitant]
     Route: 048
     Dates: start: 20111015
  4. VITAMIN B COMPLEX CAP [Concomitant]
     Route: 048
     Dates: start: 20111015
  5. MULTI-VITAMIN [Concomitant]
     Route: 048
     Dates: start: 20111015
  6. EPIRUBICIN HYDROCHLORIDE [Suspect]
     Route: 041
     Dates: start: 20111021, end: 20111021
  7. EPIRUBICIN HYDROCHLORIDE [Suspect]
     Route: 041
     Dates: start: 20111104, end: 20111104

REACTIONS (1)
  - SUPRAVENTRICULAR TACHYCARDIA [None]
